FAERS Safety Report 6883572-7 (Version None)
Quarter: 2010Q3

REPORT INFORMATION
  Report Type: 
  Country: None (occurrence: None)
  Receive Date: 20100729
  Receipt Date: 20100722
  Transmission Date: 20110219
  Serious: Yes (Death, Hospitalization)
  Sender: FDA-Public Use
  Company Number: DE-BRISTOL-MYERS SQUIBB COMPANY-14470892

PATIENT
  Age: 69 Year
  Sex: Male

DRUGS (24)
  1. ABATACEPT [Suspect]
     Indication: RHEUMATOID ARTHRITIS
     Dosage: ALSO TAKEN IN AUG 2008
     Dates: start: 20080401, end: 20080424
  2. INFLIXIMAB [Suspect]
     Indication: RHEUMATOID ARTHRITIS
  3. ARAVA [Suspect]
     Indication: RHEUMATOID ARTHRITIS
     Dosage: 10MG ONCE A DAY FROM AUG-2007
     Dates: start: 20070801, end: 20091210
  4. ARAVA [Suspect]
     Dosage: 10MG ONCE A DAY FROM AUG-2007
     Dates: start: 20070801, end: 20091210
  5. PENICILLAMINE [Suspect]
     Indication: RHEUMATOID ARTHRITIS
     Dates: start: 19810101, end: 20070701
  6. AZATHIOPRINE [Suspect]
     Indication: RHEUMATOID ARTHRITIS
     Dates: start: 19890701, end: 19900501
  7. DECORTIN-H [Suspect]
  8. FOSAVANCE [Concomitant]
  9. MARCUMAR [Concomitant]
  10. METFORMIN HCL [Concomitant]
     Dosage: 1 DOSAGEFORM = 850 (UNITS NOT MENTIONED) 2X1
  11. MUSARIL [Concomitant]
     Dosage: 2 X 1
  12. MYDOCALM [Concomitant]
     Dosage: 2X1
  13. AMLODIPINE [Concomitant]
     Dosage: 5 MG 1 X1
     Route: 048
  14. RAMIPRIL [Concomitant]
     Dosage: 10 MG 2X1
  15. RANTUDIL [Concomitant]
     Dosage: RANTUDIL FORTE 2X1
  16. IBUPROFEN TABLETS [Concomitant]
     Dosage: IBUHEXAL 3X1
  17. CLINDAMYCIN [Concomitant]
     Dosage: CLINDAMYCIN 3X1
  18. PANTOZOL [Concomitant]
  19. DURAGESIC-100 [Concomitant]
     Dosage: PLASTER
  20. BISOPROLOL FUMARATE AND HYDROCHLOROTHIAZIDE [Concomitant]
     Dosage: 1DF=5/12.5 UNITS NOT SPECIFIED
  21. TETRAZEPAM [Concomitant]
  22. QUENSYL [Concomitant]
     Dosage: 1DF=200 UNITS NOT SPECIFIED
  23. BEOFENAC [Concomitant]
  24. AUGMENTIN '125' [Concomitant]

REACTIONS (8)
  - AORTIC VALVE DISEASE [None]
  - BASAL CELL CARCINOMA [None]
  - CARDIOGENIC SHOCK [None]
  - ENDOCARDITIS [None]
  - OSTEONECROSIS OF JAW [None]
  - SEPSIS [None]
  - SKIN CANCER [None]
  - SKIN ULCER [None]
